FAERS Safety Report 5166391-1 (Version None)
Quarter: 2006Q4

REPORT INFORMATION
  Report Type: 
  Country: None (occurrence: None)
  Receive Date: 20061129
  Receipt Date: 20061114
  Transmission Date: 20070319
  Serious: Yes (Hospitalization)
  Sender: FDA-Public Use
  Company Number: 230021

PATIENT
  Age: 52 Year
  Sex: Female

DRUGS (4)
  1. AVASTIN [Suspect]
     Indication: BREAST CANCER
     Dosage: 15 MG/KG, INTRAVENOUS
     Route: 042
     Dates: start: 20060901
  2. TRASTUZUMAB (TRASTUZUMAB) PWDR + SOLVENT, INFUSION SOLN, 440MG [Suspect]
     Indication: BREAST CANCER
     Dosage: 8 MG/KG, INTRAVENOUS
     Route: 042
     Dates: start: 20060831, end: 20060831
  3. TAXOTERE [Suspect]
     Indication: BREAST CANCER
     Dosage: 75 MG/M2, INTRAVENOUS
     Route: 042
     Dates: start: 20060831, end: 20060831
  4. CARBOPLATIN [Suspect]
     Indication: BREAST CANCER
     Dosage: 6 MG/ML, INTRAVENOUS
     Route: 042
     Dates: start: 20060831, end: 20060831

REACTIONS (5)
  - ASPARTATE AMINOTRANSFERASE INCREASED [None]
  - GASTRITIS [None]
  - IRRITABLE BOWEL SYNDROME [None]
  - MUCOSAL INFLAMMATION [None]
  - SINUS CONGESTION [None]
